FAERS Safety Report 22059844 (Version 1)
Quarter: 2023Q1

REPORT INFORMATION
  Report Type: Spontaneous
  Country: US (occurrence: None)
  Receive Date: 20230302
  Receipt Date: 20230302
  Transmission Date: 20230417
  Serious: No
  Sender: FDA-Public Use
  Company Number: None

PATIENT
  Age: 50 Year
  Sex: Female
  Weight: 59.85 kg

DRUGS (1)
  1. VYEPTI [Suspect]
     Active Substance: EPTINEZUMAB-JJMR
     Indication: Migraine
     Route: 042

REACTIONS (6)
  - Infusion related reaction [None]
  - Nasal pruritus [None]
  - Lip pruritus [None]
  - Throat irritation [None]
  - Blood pressure diastolic increased [None]
  - Hypoaesthesia teeth [None]

NARRATIVE: CASE EVENT DATE: 20230227
